FAERS Safety Report 5215808-2 (Version None)
Quarter: 2007Q1

REPORT INFORMATION
  Report Type: 
  Country: None (occurrence: None)
  Receive Date: 20070123
  Receipt Date: 20070115
  Transmission Date: 20070707
  Serious: Yes (Other)
  Sender: FDA-Public Use
  Company Number: US-JNJFOC-20070103740

PATIENT
  Sex: Female
  Weight: 73.94 kg

DRUGS (12)
  1. TOPAMAX [Suspect]
     Route: 048
  2. TOPAMAX [Suspect]
     Indication: WEIGHT DECREASED
     Route: 048
  3. LITHIUM CARBONATE [Concomitant]
     Route: 048
  4. LITHIUM CARBONATE [Concomitant]
     Indication: DEPRESSION
     Route: 048
  5. SONATA [Concomitant]
     Indication: SLEEP DISORDER
     Route: 048
  6. LAMICTAL [Concomitant]
     Indication: DRUG USE FOR UNKNOWN INDICATION
     Route: 048
  7. CYMBALTA [Concomitant]
     Indication: PAIN
     Route: 048
  8. CYMBALTA [Concomitant]
     Indication: DEPRESSION
     Route: 048
  9. XANAX [Concomitant]
     Route: 048
  10. XANAX [Concomitant]
     Indication: RAYNAUD'S PHENOMENON
     Route: 048
  11. AMPHETAMINES [Concomitant]
     Indication: DRUG USE FOR UNKNOWN INDICATION
     Route: 048
  12. LEVOTHYROXINE SODIUM [Concomitant]
     Indication: THYROID DISORDER
     Route: 048

REACTIONS (8)
  - ANOREXIA [None]
  - DIABETIC NEUROPATHY [None]
  - DIARRHOEA [None]
  - DYSGEUSIA [None]
  - HYPOAESTHESIA [None]
  - NAUSEA [None]
  - PAIN IN EXTREMITY [None]
  - WEIGHT INCREASED [None]
